FAERS Safety Report 18565293 (Version 1)
Quarter: 2020Q4

REPORT INFORMATION
  Report Type: Report from Study
  Country: US (occurrence: US)
  Receive Date: 20201201
  Receipt Date: 20201201
  Transmission Date: 20210114
  Serious: Yes (Hospitalization)
  Sender: FDA-Public Use
  Company Number: US-TAKEDA-2020TUS048815

PATIENT
  Sex: Male

DRUGS (8)
  1. TEDUGLUTIDE [Suspect]
     Active Substance: TEDUGLUTIDE
     Indication: SHORT-BOWEL SYNDROME
     Dosage: 0.459 MILLIGRAM, QD
     Route: 058
     Dates: start: 20201007, end: 20201101
  2. TEDUGLUTIDE [Suspect]
     Active Substance: TEDUGLUTIDE
     Indication: SHORT-BOWEL SYNDROME
     Dosage: 0.459 MILLIGRAM, QD
     Route: 058
     Dates: start: 20201007, end: 20201101
  3. TEDUGLUTIDE [Suspect]
     Active Substance: TEDUGLUTIDE
     Dosage: 0.459 UNK
     Route: 050
     Dates: start: 20201008
  4. TEDUGLUTIDE [Suspect]
     Active Substance: TEDUGLUTIDE
     Indication: SHORT-BOWEL SYNDROME
     Dosage: 0.459 MILLIGRAM, QD
     Route: 058
     Dates: start: 20201007, end: 20201101
  5. TEDUGLUTIDE [Suspect]
     Active Substance: TEDUGLUTIDE
     Dosage: 0.459 UNK
     Route: 050
     Dates: start: 20201008
  6. TEDUGLUTIDE [Suspect]
     Active Substance: TEDUGLUTIDE
     Dosage: 0.459 UNK
     Route: 050
     Dates: start: 20201008
  7. TEDUGLUTIDE [Suspect]
     Active Substance: TEDUGLUTIDE
     Indication: SHORT-BOWEL SYNDROME
     Dosage: 0.459 MILLIGRAM, QD
     Route: 058
     Dates: start: 20201007, end: 20201101
  8. TEDUGLUTIDE [Suspect]
     Active Substance: TEDUGLUTIDE
     Dosage: 0.459 UNK
     Route: 050
     Dates: start: 20201008

REACTIONS (4)
  - Hospitalisation [Unknown]
  - Constipation [Unknown]
  - Vomiting [Unknown]
  - Swelling face [Unknown]
